FAERS Safety Report 19714452 (Version 2)
Quarter: 2021Q3

REPORT INFORMATION
  Report Type: Report from Study
  Country: None (occurrence: CA)
  Receive Date: 20210818
  Receipt Date: 20210820
  Transmission Date: 20211014
  Serious: Yes (Hospitalization, Other)
  Sender: FDA-Public Use
  Company Number: CA-ABBVIE-21K-028-4039886-00

PATIENT
  Sex: Female

DRUGS (1)
  1. MAVIRET [Suspect]
     Active Substance: GLECAPREVIR\PIBRENTASVIR
     Indication: CHRONIC HEPATITIS C
     Dosage: 100/40 MG
     Route: 048
     Dates: start: 20210727

REACTIONS (8)
  - Headache [Unknown]
  - Pain [Unknown]
  - Confusional state [Unknown]
  - Arthralgia [Unknown]
  - Pain in extremity [Unknown]
  - Leukaemia [Unknown]
  - Skin ulcer [Unknown]
  - Leprosy [Unknown]

NARRATIVE: CASE EVENT DATE: 2021
